FAERS Safety Report 25134570 (Version 2)
Quarter: 2025Q2

REPORT INFORMATION
  Report Type: Spontaneous
  Country: US (occurrence: US)
  Receive Date: 20250328
  Receipt Date: 20250415
  Transmission Date: 20250716
  Serious: Yes (Hospitalization)
  Sender: AUTOLUS THERAPEUTICS
  Company Number: US-Autolus Ltd-2173827

PATIENT
  Age: 28 Year
  Sex: Male

DRUGS (1)
  1. AUCATZYL [Suspect]
     Active Substance: OBECABTAGENE AUTOLEUCEL
     Indication: Acute lymphocytic leukaemia
     Dates: start: 20250217, end: 20250227

REACTIONS (1)
  - Hepatitis [Unknown]
